FAERS Safety Report 10177955 (Version 3)
Quarter: 2014Q4

REPORT INFORMATION
  Report Type: Report from Study
  Country: CN (occurrence: CN)
  Receive Date: 20140516
  Receipt Date: 20141113
  Transmission Date: 20150528
  Serious: Yes (Hospitalization)
  Sender: FDA-Public Use
  Company Number: CN-AMGEN-CHNCT2014035549

PATIENT
  Age: 68 Year
  Sex: Female

DRUGS (6)
  1. LEVAMLODIPINE BESILATE [Concomitant]
     Active Substance: LEVAMLODIPINE BESILATE
     Dosage: 5 MG, BID
     Route: 065
     Dates: start: 2012, end: 20140506
  2. CARVEDILOL. [Concomitant]
     Active Substance: CARVEDILOL
     Dosage: 10 MG, BID
     Route: 065
     Dates: start: 2012, end: 20140506
  3. ALFACALCIDOL [Concomitant]
     Active Substance: ALFACALCIDOL
     Dosage: 0.5 MUG, QD
     Route: 065
     Dates: start: 2012, end: 20140506
  4. EPOETIN ALFA [Concomitant]
     Active Substance: ERYTHROPOIETIN
     Indication: NEPHROGENIC ANAEMIA
     Dosage: 4500 IU, QWK
     Route: 042
     Dates: start: 20130827, end: 20131021
  5. FOLIC ACID. [Concomitant]
     Active Substance: FOLIC ACID
     Dosage: 10 MG, TID
     Route: 065
     Dates: start: 2012, end: 20140506
  6. DARBEPOETIN ALFA [Suspect]
     Active Substance: DARBEPOETIN ALFA
     Indication: NEPHROGENIC ANAEMIA
     Dosage: 10 MUG, QWK
     Route: 042
     Dates: start: 20131022

REACTIONS (2)
  - Upper respiratory tract infection [Recovering/Resolving]
  - Renal failure [Recovering/Resolving]

NARRATIVE: CASE EVENT DATE: 20131213
